FAERS Safety Report 4383543-9 (Version None)
Quarter: 2004Q2

REPORT INFORMATION
  Report Type: 
  Country: None (occurrence: None)
  Receive Date: 20040623
  Receipt Date: 20040615
  Transmission Date: 20050107
  Serious: Yes (Death, Hospitalization)
  Sender: FDA-Public Use
  Company Number: FR-BRISTOL-MYERS SQUIBB COMPANY-12616942

PATIENT
  Age: 54 Year
  Sex: Female

DRUGS (2)
  1. TAXOL [Suspect]
     Route: 042
  2. CARBOPLATIN [Suspect]
     Route: 042

REACTIONS (2)
  - CEREBROVASCULAR ACCIDENT [None]
  - DEATH [None]
